FAERS Safety Report 8769560 (Version 2)
Quarter: 2012Q4

REPORT INFORMATION
  Report Type: 
  Country: US (occurrence: US)
  Receive Date: 20120905
  Receipt Date: 20120917
  Transmission Date: 20130627
  Serious: Yes (Hospitalization)
  Sender: FDA-Public Use
  Company Number: US-BAYER-2012-090745

PATIENT
  Age: 27 Year
  Sex: Female

DRUGS (15)
  1. OCELLA [Suspect]
  2. METFORMIN HCL [Concomitant]
     Dosage: 500 mg, UNK
     Dates: start: 20081021, end: 20090403
  3. MORPHINE [Concomitant]
     Dosage: UNK
     Dates: start: 20090531
  4. METFORMIN [Concomitant]
  5. ADVAIR [Concomitant]
  6. ALDOSTERONE ANTAGONISTS [Concomitant]
  7. PROAID [Concomitant]
  8. LORTAB [Concomitant]
  9. LEVAQUIN [Concomitant]
  10. PREDNISONE [Concomitant]
  11. ANTIBIOTICS [Concomitant]
  12. DRUGS FOR OBSTRUCTIVE AIRWAY DISEASES [Concomitant]
  13. IBUPROFEN [Concomitant]
  14. ORAL CONTRACEPTIVE NOS [Concomitant]
  15. ADVAIR [Concomitant]

REACTIONS (4)
  - Cerebrovascular accident [None]
  - Pulmonary embolism [None]
  - Intracardiac thrombus [None]
  - Embolism [None]
